FAERS Safety Report 16303153 (Version 3)
Quarter: 2020Q4

REPORT INFORMATION
  Report Type: Spontaneous
  Country: US (occurrence: US)
  Receive Date: 20190513
  Receipt Date: 20201225
  Transmission Date: 20210113
  Serious: Yes (Other)
  Sender: FDA-Public Use
  Company Number: US-ASTRAZENECA-2019SE63728

PATIENT
  Age: 26605 Day
  Sex: Male

DRUGS (43)
  1. PRILOSEC [Suspect]
     Active Substance: OMEPRAZOLE MAGNESIUM
     Indication: GASTROOESOPHAGEAL REFLUX DISEASE
     Route: 048
     Dates: start: 200001, end: 201812
  2. PREVACID [Suspect]
     Active Substance: LANSOPRAZOLE
     Indication: GASTROOESOPHAGEAL REFLUX DISEASE
     Route: 065
     Dates: start: 20050109, end: 20090527
  3. PROTONIX [Suspect]
     Active Substance: PANTOPRAZOLE SODIUM
     Indication: GASTROOESOPHAGEAL REFLUX DISEASE
     Route: 065
     Dates: start: 20090629, end: 20091221
  4. GABAPENTIN. [Concomitant]
     Active Substance: GABAPENTIN
     Indication: NEURALGIA
     Dates: start: 200904
  5. ALLOPURINOL. [Concomitant]
     Active Substance: ALLOPURINOL
     Indication: GOUT
     Dates: start: 200908
  6. AMOXICILLIN. [Concomitant]
     Active Substance: AMOXICILLIN
  7. CRESTOR [Concomitant]
     Active Substance: ROSUVASTATIN CALCIUM
  8. BACLOFEN. [Concomitant]
     Active Substance: BACLOFEN
  9. ASPIRIN. [Concomitant]
     Active Substance: ASPIRIN
     Indication: CARDIAC DISORDER
  10. ATENOLOL. [Concomitant]
     Active Substance: ATENOLOL
  11. GABAPENTIN. [Concomitant]
     Active Substance: GABAPENTIN
  12. GABAPENTIN. [Concomitant]
     Active Substance: GABAPENTIN
  13. WARFARIN [Concomitant]
     Active Substance: WARFARIN
  14. PRILOSEC [Suspect]
     Active Substance: OMEPRAZOLE MAGNESIUM
     Indication: GASTROOESOPHAGEAL REFLUX DISEASE
     Dosage: GENERIC
     Route: 065
     Dates: start: 2017
  15. LEVOTHROID [Concomitant]
     Active Substance: LEVOTHYROXINE SODIUM
     Indication: HYPOTHYROIDISM
     Dates: start: 200901
  16. PROAIR HFA [Concomitant]
     Active Substance: ALBUTEROL SULFATE
  17. DOXEPIN [Concomitant]
     Active Substance: DOXEPIN
  18. ENDOCET [Concomitant]
     Active Substance: ACETAMINOPHEN\OXYCODONE HYDROCHLORIDE
  19. MULTIVITAMIN [Concomitant]
     Active Substance: VITAMINS
  20. HYDROCODONE [Concomitant]
     Active Substance: HYDROCODONE
  21. HYDROCORTISONE. [Concomitant]
     Active Substance: HYDROCORTISONE
  22. PREDNISONE. [Concomitant]
     Active Substance: PREDNISONE
  23. PREDNISONE. [Concomitant]
     Active Substance: PREDNISONE
  24. BETAMETHASONE. [Concomitant]
     Active Substance: BETAMETHASONE
  25. NITROQUICK [Concomitant]
     Active Substance: NITROGLYCERIN
  26. VITAMIN D3 [Concomitant]
     Active Substance: CHOLECALCIFEROL
  27. NEXIUM [Suspect]
     Active Substance: ESOMEPRAZOLE MAGNESIUM
     Indication: GASTROOESOPHAGEAL REFLUX DISEASE
     Route: 048
     Dates: start: 200001, end: 201812
  28. PRILOSEC [Suspect]
     Active Substance: OMEPRAZOLE MAGNESIUM
     Indication: GASTROOESOPHAGEAL REFLUX DISEASE
     Dosage: GENERIC
     Route: 065
     Dates: start: 20100107, end: 2012
  29. FLUTICASONE. [Concomitant]
     Active Substance: FLUTICASONE
     Indication: SINUS DISORDER
     Dates: start: 200904
  30. ALLOPURINOL. [Concomitant]
     Active Substance: ALLOPURINOL
     Indication: NEPHROLITHIASIS
     Dates: start: 200908
  31. LOSARTAN. [Concomitant]
     Active Substance: LOSARTAN
     Indication: BLOOD PRESSURE ABNORMAL
     Dates: start: 200904
  32. ALBUTEROL. [Concomitant]
     Active Substance: ALBUTEROL
  33. LOSARTAN. [Concomitant]
     Active Substance: LOSARTAN
  34. TRIAMCINOLONE [Concomitant]
     Active Substance: TRIAMCINOLONE
  35. PRAVASTATIN. [Concomitant]
     Active Substance: PRAVASTATIN
     Indication: BLOOD CHOLESTEROL ABNORMAL
     Dates: start: 200904
  36. VITAMIN D [Concomitant]
     Active Substance: VITAMIN D NOS
     Indication: BONE DISORDER
  37. QUININE [Concomitant]
     Active Substance: QUININE
  38. CYCLOBENZAPRINE. [Concomitant]
     Active Substance: CYCLOBENZAPRINE
  39. FLUOCINONIDE. [Concomitant]
     Active Substance: FLUOCINONIDE
  40. TYLENOL [Concomitant]
     Active Substance: ACETAMINOPHEN
     Indication: PAIN
  41. CIPRODEX [Concomitant]
     Active Substance: CIPROFLOXACIN HYDROCHLORIDE\DEXAMETHASONE
  42. LOSARTAN. [Concomitant]
     Active Substance: LOSARTAN
  43. CETIRIZINE [Concomitant]
     Active Substance: CETIRIZINE HYDROCHLORIDE

REACTIONS (4)
  - Renal failure [Not Recovered/Not Resolved]
  - Gastrooesophageal reflux disease [Not Recovered/Not Resolved]
  - Hyperparathyroidism secondary [Unknown]
  - Chronic kidney disease [Unknown]

NARRATIVE: CASE EVENT DATE: 20090630
